FAERS Safety Report 4467917-3 (Version None)
Quarter: 2004Q4

REPORT INFORMATION
  Report Type: 
  Country: None (occurrence: None)
  Receive Date: 20041004
  Receipt Date: 20040916
  Transmission Date: 20050328
  Serious: Yes (Life-Threatening)
  Sender: FDA-Public Use
  Company Number: DSA_24014_2004

PATIENT
  Age: 80 Year
  Sex: Male

DRUGS (7)
  1. TEVETEN [Suspect]
     Indication: HYPERTENSION
     Dosage: 600 MG Q DAY PO
     Route: 048
     Dates: start: 20031230, end: 20040105
  2. CANCER TREATMENT [Suspect]
     Indication: CARCINOMA
  3. HYDROXOCOBALAMIN [Concomitant]
  4. OXAZEPAM [Concomitant]
  5. ZOLOFT [Concomitant]
  6. OMEPRAZOLE [Concomitant]
  7. PARACETAMOL [Concomitant]

REACTIONS (6)
  - FALL [None]
  - METASTASES TO BONE [None]
  - OSTEOLYSIS [None]
  - PAIN [None]
  - PELVIC FRACTURE [None]
  - SARCOMA [None]
